FAERS Safety Report 9281476 (Version 1)
Quarter: 2013Q2

REPORT INFORMATION
  Report Type: Spontaneous
  Country: DE (occurrence: DE)
  Receive Date: 20130509
  Receipt Date: 20130509
  Transmission Date: 20140414
  Serious: Yes (Other)
  Sender: FDA-Public Use
  Company Number: DE-TEVA-401880GER

PATIENT
  Age: 72 Year
  Sex: Female
  Weight: 85 kg

DRUGS (1)
  1. LOSARTAN / HCT [Suspect]
     Indication: HYPERTENSION
     Dosage: 50MG LOSARTAN AND 12,5 MG HYDROCHLOROTHIAZIDE
     Dates: start: 201203, end: 201212

REACTIONS (2)
  - Fracture [Unknown]
  - Syncope [Unknown]
